FAERS Safety Report 7859591-0 (Version None)
Quarter: 2011Q4

REPORT INFORMATION
  Report Type: 
  Country: None (occurrence: None)
  Receive Date: 20111027
  Receipt Date: 20111024
  Transmission Date: 20120403
  Serious: Yes (Other)
  Sender: FDA-Public Use
  Company Number: BR-PFIZER INC-2011257317

PATIENT
  Age: 47 Year
  Sex: Female
  Weight: 71.655 kg

DRUGS (2)
  1. VARENICLINE TARTRATE [Suspect]
     Dosage: 1 MG, 2X/DAY (IN THE MORNING)
     Route: 048
     Dates: start: 20110101
  2. VARENICLINE TARTRATE [Suspect]
     Indication: SMOKING CESSATION THERAPY
     Dosage: UNK
     Route: 048
     Dates: start: 20110928, end: 20110101

REACTIONS (7)
  - ORAL MUCOSAL ERUPTION [None]
  - MALAISE [None]
  - ABDOMINAL PAIN [None]
  - DEPRESSED MOOD [None]
  - NAUSEA [None]
  - GINGIVAL BLEEDING [None]
  - APHTHOUS STOMATITIS [None]
